FAERS Safety Report 8250171-4 (Version None)
Quarter: 2012Q2

REPORT INFORMATION
  Report Type: 
  Country: None (occurrence: None)
  Receive Date: 20120402
  Receipt Date: 20120329
  Transmission Date: 20120825
  Serious: Yes (Death)
  Sender: FDA-Public Use
  Company Number: CO-PFIZER INC-2012081572

PATIENT
  Sex: Male

DRUGS (6)
  1. ASPIRIN [Concomitant]
     Dosage: 100 MG, 1X/DAY
  2. HYDROCHLOROTHIAZIDE [Concomitant]
     Dosage: 25 MG, 1X/DAY
  3. LIPITOR [Suspect]
     Indication: DYSLIPIDAEMIA
     Dosage: 10 MG, UNK
     Dates: start: 20080803
  4. OLMESARTAN MEDOXOMIL AND HYDROCHLOROTHIZIDE [Suspect]
     Indication: HYPERTENSION
     Dosage: [OLMESARTAN MEDOXOMIL 20 MG]/[ HYDROCHLOROTHIAZIDE 12.5 MG], DAILY
     Dates: start: 20071203
  5. METOPROLOL [Concomitant]
     Dosage: 50 MG EVERY 12 HOURS
  6. LOSARTAN [Concomitant]
     Dosage: 50 MG, EVERY 12 HOURS
     Route: 048

REACTIONS (1)
  - DEATH [None]
